FAERS Safety Report 15384436 (Version 1)
Quarter: 2018Q3

REPORT INFORMATION
  Report Type: Spontaneous
  Country: US (occurrence: US)
  Receive Date: 20180907
  Receipt Date: 20180907
  Transmission Date: 20181010
  Serious: Yes (Hospitalization)
  Sender: FDA-Public Use
  Company Number: None

PATIENT
  Age: 68 Year
  Sex: Male
  Weight: 105 kg

DRUGS (1)
  1. INSULIN [Suspect]
     Active Substance: INSULIN NOS
     Indication: HYPOGLYCAEMIA
     Dates: start: 20150901

REACTIONS (3)
  - Dizziness [None]
  - Blood glucose increased [None]
  - Hypoglycaemia [None]

NARRATIVE: CASE EVENT DATE: 20180828
